FAERS Safety Report 16879784 (Version 7)
Quarter: 2024Q1

REPORT INFORMATION
  Report Type: Other
  Country: US (occurrence: None)
  Receive Date: 20191003
  Receipt Date: 20240318
  Transmission Date: 20240410
  Serious: Yes (Hospitalization, Other)
  Sender: FDA-Public Use
  Company Number: US-ROCHE-2422498

PATIENT
  Age: 63 Year
  Sex: Female
  Weight: 113.5 kg

DRUGS (18)
  1. OCREVUS [Suspect]
     Active Substance: OCRELIZUMAB
     Indication: Relapsing-remitting multiple sclerosis
     Dosage: DATE OF TREATMENT: 18/MAR/2021, 23/AUG/2019, 25/FEB/2019.
     Route: 042
     Dates: start: 20190225
  2. VALIUM [Suspect]
     Active Substance: DIAZEPAM
     Indication: Muscle spasms
     Route: 048
  3. TYLENOL [Concomitant]
     Active Substance: ACETAMINOPHEN
     Indication: Pain
  4. ALPHAGAN P [Concomitant]
     Active Substance: BRIMONIDINE TARTRATE
  5. ACETAMINOPHEN [Concomitant]
     Active Substance: ACETAMINOPHEN
  6. BRIMONIDINE [Concomitant]
     Active Substance: BRIMONIDINE TARTRATE
     Dosage: 1 DROP IN BOTH EYES EVERY 8 HOURS
  7. TUMS [Concomitant]
     Active Substance: CALCIUM CARBONATE
  8. RESTASIS [Concomitant]
     Active Substance: CYCLOSPORINE
     Dosage: 1 DROP INTO BOTH EYES TWICE IN A DAY
  9. CYMBALTA [Concomitant]
     Active Substance: DULOXETINE HYDROCHLORIDE
     Dosage: 60 MG BY MOUTH TWICE IN A DAY
  10. ROMYCIN [ERYTHROMYCIN] [Concomitant]
  11. NEURONTIN [Concomitant]
     Active Substance: GABAPENTIN
     Route: 048
  12. GLUCOTROL [Concomitant]
     Active Substance: GLIPIZIDE
     Dosage: 5 MG BY MOUTH DAILY
  13. SYNTHROID [Concomitant]
     Active Substance: LEVOTHYROXINE SODIUM
  14. MAGNESIUM CARBONATE [Concomitant]
     Active Substance: MAGNESIUM CARBONATE
  15. BEN GAY [Concomitant]
     Route: 061
  16. TRAVATAN Z [Concomitant]
     Active Substance: TRAVOPROST
     Route: 047
  17. HUMALOG [Concomitant]
     Active Substance: INSULIN LISPRO
     Route: 058
  18. FOLVITE [Concomitant]
     Active Substance: FOLIC ACID
     Route: 048

REACTIONS (35)
  - Fall [Unknown]
  - Pain [Unknown]
  - Urinary tract infection [Not Recovered/Not Resolved]
  - Hypotension [Not Recovered/Not Resolved]
  - Wrist fracture [Unknown]
  - Cerebrovascular accident [Recovered/Resolved]
  - Rib fracture [Unknown]
  - Dehydration [Unknown]
  - Weight increased [Unknown]
  - Blood pressure fluctuation [Recovered/Resolved]
  - Dysarthria [Unknown]
  - Hypoaesthesia [Unknown]
  - Cognitive disorder [Not Recovered/Not Resolved]
  - Weight decreased [Recovered/Resolved]
  - Atrial fibrillation [Unknown]
  - Intracardiac thrombus [Recovered/Resolved]
  - Cardiomegaly [Not Recovered/Not Resolved]
  - Right ventricular failure [Not Recovered/Not Resolved]
  - Loss of consciousness [Not Recovered/Not Resolved]
  - Pain in extremity [Unknown]
  - Urinary incontinence [Not Recovered/Not Resolved]
  - Chronic kidney disease [Not Recovered/Not Resolved]
  - Pneumonia [Recovered/Resolved]
  - Osteoporosis [Unknown]
  - Joint instability [Unknown]
  - Joint range of motion decreased [Unknown]
  - Dysgraphia [Unknown]
  - Formication [Unknown]
  - Hemiparesis [Unknown]
  - Bladder pain [Not Recovered/Not Resolved]
  - COVID-19 [Recovered/Resolved]
  - Memory impairment [Not Recovered/Not Resolved]
  - Asthenia [Not Recovered/Not Resolved]
  - Orthostatic hypotension [Not Recovered/Not Resolved]
  - Muscle spasms [Unknown]

NARRATIVE: CASE EVENT DATE: 20190914
